FAERS Safety Report 8612127-9 (Version None)
Quarter: 2012Q3

REPORT INFORMATION
  Report Type: 
  Country: None (occurrence: None)
  Receive Date: 20120822
  Receipt Date: 20120820
  Transmission Date: 20120928
  Serious: Yes (Other)
  Sender: FDA-Public Use
  Company Number: US-PFIZER INC-2012162375

PATIENT
  Sex: Female

DRUGS (6)
  1. LYRICA [Suspect]
     Dosage: 100 MG, 2X/DAY
     Route: 048
     Dates: start: 20120101
  2. TENORMIN [Concomitant]
     Indication: HYPERTENSION
     Dosage: UNK
  3. LYRICA [Suspect]
     Indication: FIBROMYALGIA
     Dosage: 50 MG, 2X/DAY
     Route: 048
     Dates: start: 20120501
  4. LYRICA [Suspect]
     Dosage: UNK
     Route: 048
     Dates: start: 20120101
  5. ZOCOR [Concomitant]
     Indication: BLOOD CHOLESTEROL INCREASED
     Dosage: UNK, DAILY
     Route: 048
  6. LYRICA [Suspect]
     Dosage: 150 MG, 2X/DAY
     Route: 048
     Dates: start: 20120101

REACTIONS (6)
  - INSOMNIA [None]
  - ERYTHEMA [None]
  - DRY SKIN [None]
  - AMNESIA [None]
  - SKIN BURNING SENSATION [None]
  - SKIN EXFOLIATION [None]
